FAERS Safety Report 21373683 (Version 4)
Quarter: 2025Q4

REPORT INFORMATION
  Report Type: Spontaneous
  Country: EU (occurrence: EU)
  Receive Date: 20220926
  Receipt Date: 20251013
  Transmission Date: 20260118
  Serious: Yes (Death, Life-Threatening, Other)
  Sender: AMGEN
  Company Number: EU-AMGEN-POLSP2022162374

PATIENT

DRUGS (3)
  1. CARFILZOMIB [Suspect]
     Active Substance: CARFILZOMIB
     Indication: Plasma cell myeloma
     Dosage: UNK
     Route: 065
  2. LENALIDOMIDE [Suspect]
     Active Substance: LENALIDOMIDE
     Indication: Plasma cell myeloma
     Dosage: UNK
     Route: 065
  3. DEXAMETHASONE [Suspect]
     Active Substance: DEXAMETHASONE
     Indication: Plasma cell myeloma
     Dosage: UNK
     Route: 065

REACTIONS (9)
  - Infection [Unknown]
  - Death [Fatal]
  - Cardiotoxicity [Unknown]
  - Neutropenia [Unknown]
  - Neoplasm malignant [Unknown]
  - Thrombocytopenia [Unknown]
  - Plasma cell myeloma [Unknown]
  - Secondary immunodeficiency [Unknown]
  - Therapy partial responder [Unknown]
